FAERS Safety Report 10969182 (Version 1)
Quarter: 2015Q1

REPORT INFORMATION
  Report Type: Spontaneous
  Country: US (occurrence: None)
  Receive Date: 20150330
  Receipt Date: 20150330
  Transmission Date: 20150721
  Serious: Yes (Other)
  Sender: FDA-Public Use
  Company Number: None

PATIENT
  Age: 65 Year
  Sex: Female

DRUGS (2)
  1. FORTEO [Suspect]
     Active Substance: TERIPARATIDE
     Indication: OSTEOPOROSIS
     Dosage: STRENGTH: 600MCG, DOSE FORM:  INJECTABLE, FREQUENCY: QD, ROUTE: SUBCUTANEOUS 057
     Route: 058
  2. FOSAMAX [Concomitant]
     Active Substance: ALENDRONATE SODIUM

REACTIONS (4)
  - Pyrexia [None]
  - Dyspnoea [None]
  - Hypersensitivity [None]
  - Nausea [None]

NARRATIVE: CASE EVENT DATE: 20150326
